FAERS Safety Report 7659482-4 (Version None)
Quarter: 2011Q3

REPORT INFORMATION
  Report Type: 
  Country: None (occurrence: None)
  Receive Date: 20110805
  Receipt Date: 20110727
  Transmission Date: 20111222
  Serious: Yes (Death, Other)
  Sender: FDA-Public Use
  Company Number: CA-GENZYME-THYM-1002656

PATIENT
  Age: 59 Year
  Sex: Male

DRUGS (1)
  1. THYMOGLOBULIN [Suspect]
     Indication: BONE MARROW CONDITIONING REGIMEN
     Dosage: UNK
     Route: 042

REACTIONS (3)
  - RESPIRATORY FAILURE [None]
  - BACTERAEMIA [None]
  - ACUTE RESPIRATORY DISTRESS SYNDROME [None]
